FAERS Safety Report 7431819-0 (Version None)
Quarter: 2011Q2

REPORT INFORMATION
  Report Type: 
  Country: None (occurrence: None)
  Receive Date: 20110422
  Receipt Date: 20110408
  Transmission Date: 20111010
  Serious: Yes (Hospitalization, Disabling)
  Sender: FDA-Public Use
  Company Number: PHHY2011JP29843

PATIENT
  Sex: Male
  Weight: 106 kg

DRUGS (10)
  1. CRESTOR [Concomitant]
     Dosage: 2.5 MG, UNK
     Route: 048
     Dates: start: 20100520, end: 20110208
  2. YODEL [Concomitant]
     Dosage: 160 MG, UNK
     Route: 048
     Dates: start: 20100520, end: 20110208
  3. LASIX [Concomitant]
     Indication: HYPERTENSION
     Dosage: 20 MG, UNK
     Route: 048
     Dates: start: 20101001, end: 20110208
  4. CALCIUM POLYSTYRENE SULFONATE [Concomitant]
     Dosage: 25 MG, UNK
     Route: 048
     Dates: start: 20100714, end: 20110208
  5. OLMETEC [Suspect]
     Indication: HYPERTENSION
     Dosage: 20 MG, UNK
     Route: 048
     Dates: start: 20100714, end: 20110208
  6. NOVOLIN R [Concomitant]
     Dosage: 16 IU, UNK
     Route: 058
     Dates: start: 20100520, end: 20110208
  7. ALISKIREN [Suspect]
     Indication: HYPERTENSION
     Dosage: 150 MG, DAILY
     Route: 048
     Dates: start: 20101001, end: 20110208
  8. DIOVAN [Concomitant]
     Indication: HYPERTENSION
     Dosage: 80 MG, UNK
     Route: 048
     Dates: start: 20100520, end: 20100713
  9. NORVASC [Concomitant]
     Indication: HYPERTENSION
     Dosage: 5 MG, UNK
     Route: 048
     Dates: start: 20100908, end: 20110208
  10. ATELEC [Concomitant]
     Indication: HYPERTENSION
     Dosage: 10 MG, UNK
     Route: 048
     Dates: start: 20100520, end: 20100907

REACTIONS (1)
  - RENAL FAILURE [None]
